FAERS Safety Report 23594335 (Version 1)
Quarter: 2024Q1

REPORT INFORMATION
  Report Type: Report from Study
  Country: US (occurrence: US)
  Receive Date: 20240305
  Receipt Date: 20240305
  Transmission Date: 20240410
  Serious: No
  Sender: FDA-Public Use
  Company Number: US-ACADIA PHARMACEUTICALS INC.-ACA-2024-PIM-000598

PATIENT
  Age: 78 Year
  Sex: Male

DRUGS (8)
  1. NUPLAZID [Suspect]
     Active Substance: PIMAVANSERIN TARTRATE
     Indication: Parkinson^s disease
     Dosage: 34 MILLIGRAM, QD
     Route: 048
     Dates: start: 20231213, end: 20240216
  2. AMANTADINE [Concomitant]
     Active Substance: AMANTADINE
  3. ATIVAN [Concomitant]
     Active Substance: LORAZEPAM
  4. CARBIDOPA\LEVODOPA [Concomitant]
     Active Substance: CARBIDOPA\LEVODOPA
  5. OMEPRAZOLE [Concomitant]
     Active Substance: OMEPRAZOLE
  6. PEPCID [Concomitant]
     Active Substance: FAMOTIDINE
  7. PRAMIPEXOLE [Concomitant]
     Active Substance: PRAMIPEXOLE\PRAMIPEXOLE DIHYDROCHLORIDE
  8. RAPAFLO [Concomitant]
     Active Substance: SILODOSIN

REACTIONS (3)
  - Ill-defined disorder [Recovered/Resolved]
  - Hallucination [Recovered/Resolved]
  - Confusional state [Recovered/Resolved]

NARRATIVE: CASE EVENT DATE: 20240111
